FAERS Safety Report 5017909-0 (Version None)
Quarter: 2006Q2

REPORT INFORMATION
  Report Type: 
  Country: None (occurrence: None)
  Receive Date: 20060605
  Receipt Date: 20060518
  Transmission Date: 20061013
  Serious: Yes (Hospitalization)
  Sender: FDA-Public Use
  Company Number: 2006SE02858

PATIENT
  Age: 35 Year
  Sex: Female
  Weight: 60 kg

DRUGS (4)
  1. MARCAINE [Suspect]
     Indication: LOCAL ANAESTHESIA
     Route: 037
     Dates: start: 20060517
  2. 2% LIGNOCAIN (LIDOCAIN) [Concomitant]
     Indication: LOCAL ANAESTHESIA
  3. ATROPINE [Concomitant]
     Indication: BRADYCARDIA
  4. OXITOCIN [Concomitant]
     Indication: CAESAREAN SECTION

REACTIONS (4)
  - ANAPHYLACTIC REACTION [None]
  - ERYTHEMA [None]
  - GENERALISED OEDEMA [None]
  - PARAESTHESIA [None]
